FAERS Safety Report 5260612-2 (Version None)
Quarter: 2007Q1

REPORT INFORMATION
  Report Type: 
  Country: None (occurrence: None)
  Receive Date: 20070309
  Receipt Date: 20061117
  Transmission Date: 20070707
  Serious: No
  Sender: FDA-Public Use
  Company Number: US-GLAXOSMITHKLINE-A0627805A

PATIENT
  Age: 45 Year

DRUGS (2)
  1. NICORETTE [Suspect]
     Dates: end: 20061116
  2. NICORETTE [Suspect]
     Dates: end: 20061116

REACTIONS (2)
  - INTENTIONAL DRUG MISUSE [None]
  - TONGUE BLISTERING [None]
